FAERS Safety Report 8516796-3 (Version None)
Quarter: 2012Q3

REPORT INFORMATION
  Report Type: 
  Country: None (occurrence: None)
  Receive Date: 20120718
  Receipt Date: 20120713
  Transmission Date: 20120928
  Serious: No
  Sender: FDA-Public Use
  Company Number: US-BAYER-2012-070315

PATIENT
  Sex: Female

DRUGS (1)
  1. CLIMARA [Suspect]
     Indication: MENOPAUSAL SYMPTOMS

REACTIONS (5)
  - DISCOMFORT [None]
  - PAIN [None]
  - BURNING SENSATION [None]
  - MENOPAUSAL SYMPTOMS [None]
  - PRURITUS [None]
